FAERS Safety Report 15459388 (Version 3)
Quarter: 2018Q4

REPORT INFORMATION
  Report Type: Spontaneous
  Country: JP (occurrence: JP)
  Receive Date: 20181003
  Receipt Date: 20181106
  Transmission Date: 20190204
  Serious: Yes (Death)
  Sender: FDA-Public Use
  Company Number: JP-ASTRAZENECA-2018SF27425

PATIENT
  Age: 60 Year
  Sex: Male

DRUGS (1)
  1. IMFINZI [Suspect]
     Active Substance: DURVALUMAB
     Indication: NON-SMALL CELL LUNG CANCER
     Route: 041
     Dates: start: 20180914

REACTIONS (2)
  - Cardio-respiratory arrest [Fatal]
  - Obstructive airways disorder [Fatal]

NARRATIVE: CASE EVENT DATE: 20180923
